FAERS Safety Report 17178616 (Version 1)
Quarter: 2019Q4

REPORT INFORMATION
  Report Type: Spontaneous
  Country: IL (occurrence: IL)
  Receive Date: 20191219
  Receipt Date: 20191219
  Transmission Date: 20200122
  Serious: Yes (Other)
  Sender: FDA-Public Use
  Company Number: IL-PFIZER INC-2019544852

PATIENT
  Age: 83 Year
  Sex: Male

DRUGS (1)
  1. AZENIL (AZITHROMYCIN) [Suspect]
     Active Substance: AZITHROMYCIN
     Dosage: UNK

REACTIONS (3)
  - Product administered to patient of inappropriate age [Unknown]
  - Hallucination [Unknown]
  - Off label use [Unknown]
